FAERS Safety Report 25995832 (Version 1)
Quarter: 2025Q4

REPORT INFORMATION
  Report Type: Other
  Country: CN (occurrence: CN)
  Receive Date: 20251104
  Receipt Date: 20251104
  Transmission Date: 20260118
  Serious: Yes (Hospitalization, Other)
  Sender: APRECIA PHARMACEUTICALS
  Company Number: CN-Aprecia Pharmaceuticals-APRE20250235

PATIENT
  Age: 14 Year
  Sex: Female

DRUGS (2)
  1. LEVETIRACETAM [Suspect]
     Active Substance: LEVETIRACETAM
     Indication: Epilepsy
     Dosage: 250 MG BID, STARTED HALF A MONTH BEFORE THE ONSET OF PAPULES.
     Route: 065
     Dates: start: 2023
  2. LAMOTRIGINE [Suspect]
     Active Substance: LAMOTRIGINE
     Indication: Epilepsy
     Dosage: 75 MG BID, STARTED HALF A MONTH BEFORE THE ONSET OF PAPULES.
     Route: 065
     Dates: start: 2023

REACTIONS (7)
  - Epidermolysis bullosa [Recovered/Resolved]
  - Toxic epidermal necrolysis [Recovered/Resolved]
  - Drug-induced liver injury [Not Recovered/Not Resolved]
  - Papule [Recovered/Resolved]
  - Pyrexia [Recovered/Resolved]
  - Jaundice [Unknown]
  - Scab [Recovered/Resolved]

NARRATIVE: CASE EVENT DATE: 20230601
